FAERS Safety Report 13773444 (Version 1)
Quarter: 2017Q3

REPORT INFORMATION
  Report Type: Spontaneous
  Country: GB (occurrence: GB)
  Receive Date: 20170720
  Receipt Date: 20170720
  Transmission Date: 20171127
  Serious: Yes (Life-Threatening)
  Sender: FDA-Public Use
  Company Number: PHFR2017GB005428

PATIENT
  Age: 75 Year
  Sex: Male

DRUGS (2)
  1. SALBUTAMOL [Suspect]
     Active Substance: ALBUTEROL
     Indication: PRODUCT USED FOR UNKNOWN INDICATION
     Route: 055
     Dates: start: 201611, end: 20170628
  2. COLOMYCIN [Interacting]
     Active Substance: COLISTIN
     Indication: PRODUCT USED FOR UNKNOWN INDICATION
     Route: 055
     Dates: start: 201611, end: 20170628

REACTIONS (4)
  - Lower respiratory tract infection [Recovering/Resolving]
  - Condition aggravated [Unknown]
  - Respiratory arrest [Recovering/Resolving]
  - Drug interaction [Unknown]
